FAERS Safety Report 4919041-0 (Version None)
Quarter: 2006Q1

REPORT INFORMATION
  Report Type: 
  Country: None (occurrence: None)
  Receive Date: 20060222
  Receipt Date: 20060215
  Transmission Date: 20060701
  Serious: Yes (Hospitalization, Other)
  Sender: FDA-Public Use
  Company Number: PHHO2006JP03001

PATIENT
  Age: 69 Year
  Sex: Male

DRUGS (5)
  1. LOCHOL [Suspect]
     Indication: HYPERCHOLESTEROLAEMIA
     Dates: start: 20001207
  2. GLYCYRON [Concomitant]
     Indication: ALCOHOLIC LIVER DISEASE
  3. NORVASC [Concomitant]
     Indication: HYPERTENSION
  4. COVERSYL [Concomitant]
     Indication: HYPERTENSION
  5. ALTAT [Concomitant]
     Dates: start: 20010726, end: 20021218

REACTIONS (1)
  - ABNORMAL BEHAVIOUR [None]
